FAERS Safety Report 11178426 (Version 1)
Quarter: 2015Q2

REPORT INFORMATION
  Report Type: Spontaneous
  Country: US (occurrence: US)
  Receive Date: 20150610
  Receipt Date: 20150610
  Transmission Date: 20150821
  Serious: No
  Sender: FDA-Public Use
  Company Number: US-SHIRE-US201505530

PATIENT

DRUGS (1)
  1. VYVANSE [Suspect]
     Active Substance: LISDEXAMFETAMINE DIMESYLATE
     Indication: BULIMIA NERVOSA
     Dosage: UNK, UNKNOWN
     Route: 048

REACTIONS (2)
  - Product use issue [Not Recovered/Not Resolved]
  - No adverse event [Not Recovered/Not Resolved]
